FAERS Safety Report 8101587-8 (Version None)
Quarter: 2012Q1

REPORT INFORMATION
  Report Type: 
  Country: None (occurrence: None)
  Receive Date: 20120129
  Receipt Date: 20111005
  Transmission Date: 20120608
  Serious: No
  Sender: FDA-Public Use
  Company Number: US-ABBOTT-11P-163-0855921-00

PATIENT
  Sex: Male

DRUGS (2)
  1. HUMIRA [Suspect]
     Indication: PSORIASIS
     Dates: start: 20110624, end: 20110916
  2. CLAMATOSOL [Concomitant]
     Indication: PSORIASIS

REACTIONS (4)
  - RECTAL LESION [None]
  - ANAL SKIN TAGS [None]
  - ANOGENITAL WARTS [None]
  - PAPILLOMA VIRAL INFECTION [None]
